FAERS Safety Report 7420314-0 (Version None)
Quarter: 2011Q2

REPORT INFORMATION
  Report Type: 
  Country: None (occurrence: None)
  Receive Date: 20110418
  Receipt Date: 20110411
  Transmission Date: 20111010
  Serious: Yes (Other)
  Sender: FDA-Public Use
  Company Number: PHFR2011GB02206

PATIENT
  Sex: Female

DRUGS (3)
  1. NEORAL [Suspect]
     Indication: RHEUMATOID ARTHRITIS
     Dosage: 150 MG, QD
  2. HUMIRA [Concomitant]
  3. DEXIMUNE [Suspect]

REACTIONS (3)
  - PSORIATIC ARTHROPATHY [None]
  - MUSCLE SPASMS [None]
  - OEDEMA PERIPHERAL [None]
